FAERS Safety Report 7727840-5 (Version None)
Quarter: 2011Q3

REPORT INFORMATION
  Report Type: 
  Country: None (occurrence: None)
  Receive Date: 20110905
  Receipt Date: 20110825
  Transmission Date: 20111222
  Serious: Yes (Hospitalization)
  Sender: FDA-Public Use
  Company Number: DE-BIOGENIDEC-2011BI032380

PATIENT
  Age: 31 Year
  Sex: Female
  Weight: 78 kg

DRUGS (1)
  1. AVONEX [Suspect]
     Indication: MULTIPLE SCLEROSIS
     Route: 030
     Dates: start: 20090201, end: 20100801

REACTIONS (8)
  - HEPATITIS [None]
  - WHITE BLOOD CELL COUNT INCREASED [None]
  - BORRELIA INFECTION [None]
  - INFLUENZA LIKE ILLNESS [None]
  - PYREXIA [None]
  - ARTHROPOD BITE [None]
  - OSTEOMYELITIS [None]
  - SPLENOMEGALY [None]
